FAERS Safety Report 13003881 (Version 2)
Quarter: 2016Q4

REPORT INFORMATION
  Report Type: Spontaneous
  Country: None (occurrence: FI)
  Receive Date: 20161206
  Receipt Date: 20161221
  Transmission Date: 20170207
  Serious: Yes (Other)
  Sender: FDA-Public Use
  Company Number: FI-POPULATION COUNCIL, INC.-1060489

PATIENT
  Age: 22 Year
  Sex: Female

DRUGS (1)
  1. JADELLE [Suspect]
     Active Substance: LEVONORGESTREL
     Indication: CONTRACEPTION
     Route: 059
     Dates: start: 20110225, end: 20161201

REACTIONS (8)
  - Procedural pain [None]
  - Device use issue [None]
  - Device dislocation [None]
  - Device breakage [None]
  - Vaginal haemorrhage [None]
  - Skin disorder [None]
  - Complication of device removal [None]
  - Procedural pain [None]

NARRATIVE: CASE EVENT DATE: 20110225
